FAERS Safety Report 7633786-3 (Version None)
Quarter: 2011Q3

REPORT INFORMATION
  Report Type: 
  Country: None (occurrence: None)
  Receive Date: 20110718
  Receipt Date: 20110701
  Transmission Date: 20111222
  Serious: Yes (Other)
  Sender: FDA-Public Use
  Company Number: TCI2011A03849

PATIENT
  Age: 79 Year
  Sex: Male

DRUGS (4)
  1. CRESTOR [Concomitant]
  2. AMARYL [Concomitant]
  3. SEIBULE (MIGLITOL) [Concomitant]
  4. ACTOS [Suspect]
     Indication: TYPE 2 DIABETES MELLITUS
     Dosage: 30 MG (30 MG,L D)	PER ORAL
     Route: 048
     Dates: start: 20061001

REACTIONS (1)
  - BLADDER CANCER [None]
